FAERS Safety Report 5624208-2 (Version None)
Quarter: 2008Q1

REPORT INFORMATION
  Report Type: 
  Country: None (occurrence: None)
  Receive Date: 20080213
  Receipt Date: 20080204
  Transmission Date: 20080703
  Serious: Yes (Death, Hospitalization)
  Sender: FDA-Public Use
  Company Number: ES-BAYER-200712318GDS

PATIENT
  Age: 77 Year
  Sex: Female

DRUGS (17)
  1. ADIRO [Suspect]
     Indication: DRUG USE FOR UNKNOWN INDICATION
     Route: 065
     Dates: start: 20060101
  2. ZINNAT 125 MG [Suspect]
     Indication: DRUG USE FOR UNKNOWN INDICATION
     Route: 065
     Dates: start: 20070101
  3. OMEPRAZOLE [Suspect]
     Indication: DRUG USE FOR UNKNOWN INDICATION
     Route: 065
     Dates: start: 20070101
  4. SEGURIL [Suspect]
     Indication: DRUG USE FOR UNKNOWN INDICATION
     Route: 065
     Dates: start: 20060101
  5. NSAID [Suspect]
     Indication: DRUG USE FOR UNKNOWN INDICATION
     Route: 065
     Dates: start: 20060101
  6. FELDENE [Suspect]
     Indication: DRUG USE FOR UNKNOWN INDICATION
     Route: 065
     Dates: start: 20060101
  7. MANIDON [Suspect]
     Indication: DRUG USE FOR UNKNOWN INDICATION
     Route: 065
     Dates: start: 20060101
  8. FOSAMAX [Suspect]
     Indication: DRUG USE FOR UNKNOWN INDICATION
     Route: 065
     Dates: start: 20060101
  9. DEANXIT 10/0.5 MG (FLUPENTIXOL) [Suspect]
     Indication: DRUG USE FOR UNKNOWN INDICATION
     Route: 065
     Dates: start: 20060101
  10. SPIRIVA [Suspect]
     Indication: DRUG USE FOR UNKNOWN INDICATION
     Route: 065
  11. PULMICORT [Suspect]
     Indication: DRUG USE FOR UNKNOWN INDICATION
     Route: 065
  12. FLUMIL [Suspect]
     Indication: DRUG USE FOR UNKNOWN INDICATION
     Route: 065
  13. FERRUM [Suspect]
     Indication: DRUG USE FOR UNKNOWN INDICATION
     Route: 048
  14. SPIRIVA [Concomitant]
     Indication: DRUG USE FOR UNKNOWN INDICATION
  15. PULMICORT [Concomitant]
     Indication: DRUG USE FOR UNKNOWN INDICATION
  16. FLUMIL (ACETILCYSTEINE) [Concomitant]
     Indication: DRUG USE FOR UNKNOWN INDICATION
  17. IRON [Concomitant]
     Indication: DRUG USE FOR UNKNOWN INDICATION
     Route: 048

REACTIONS (2)
  - SEPSIS [None]
  - TOXIC EPIDERMAL NECROLYSIS [None]
